FAERS Safety Report 4695523-4 (Version None)
Quarter: 2005Q2

REPORT INFORMATION
  Report Type: 
  Country: None (occurrence: None)
  Receive Date: 20050621
  Receipt Date: 20050609
  Transmission Date: 20051028
  Serious: Yes (Other)
  Sender: FDA-Public Use
  Company Number: PHBS2005JP08406

PATIENT
  Age: 70 Year
  Sex: Male

DRUGS (5)
  1. AREDIA [Suspect]
     Indication: MULTIPLE MYELOMA
     Dosage: 30 MG
     Route: 042
  2. VOLTAREN [Suspect]
     Route: 065
  3. PENTCILLIN [Suspect]
     Dosage: 4 G/D
     Route: 042
  4. FILGRASTIM [Concomitant]
     Route: 042
  5. TOBRACIN [Concomitant]
     Dosage: 120 MG/D
     Route: 042

REACTIONS (3)
  - DEMENTIA [None]
  - DISORIENTATION [None]
  - TREMOR [None]
